FAERS Safety Report 14873550 (Version 1)
Quarter: 2018Q2

REPORT INFORMATION
  Report Type: Spontaneous
  Country: DE (occurrence: DE)
  Receive Date: 20180510
  Receipt Date: 20180510
  Transmission Date: 20180711
  Serious: Yes (Other)
  Sender: FDA-Public Use
  Company Number: DE-MERCK KGAA-2047529

PATIENT
  Age: 75 Year
  Sex: Female

DRUGS (2)
  1. VIGANTOLETTEN [Concomitant]
     Active Substance: CHOLECALCIFEROL
     Dates: start: 20180502
  2. NOVOTHYROX [Suspect]
     Active Substance: LEVOTHYROXINE SODIUM
     Indication: AUTOIMMUNE THYROIDITIS

REACTIONS (7)
  - Oedema [None]
  - Tri-iodothyronine free decreased [None]
  - Listless [None]
  - Blood thyroid stimulating hormone increased [None]
  - Arrhythmia [None]
  - Heart rate increased [None]
  - Anti-thyroid antibody positive [None]
